FAERS Safety Report 8777084 (Version 1)
Quarter: 2012Q4

REPORT INFORMATION
  Report Type: 
  Country: US (occurrence: US)
  Receive Date: 20120911
  Receipt Date: 20120911
  Transmission Date: 20130627
  Serious: Yes (Hospitalization, Other)
  Sender: FDA-Public Use
  Company Number: US-BRISTOL-MYERS SQUIBB COMPANY-16917528

PATIENT
  Age: 64 Year
  Sex: Male
  Weight: 91 kg

DRUGS (1)
  1. KENALOG [Suspect]
     Indication: HYPERSENSITIVITY
     Dosage: last Kenalog shot was 15May2012

REACTIONS (7)
  - Pneumonia [Unknown]
  - Renal failure [Unknown]
  - Cardiac failure [Unknown]
  - Blood pressure increased [Unknown]
  - Weight fluctuation [Unknown]
  - Joint swelling [Recovered/Resolved]
  - Eye swelling [Unknown]
